FAERS Safety Report 15369312 (Version 1)
Quarter: 2018Q3

REPORT INFORMATION
  Report Type: Spontaneous
  Country: SE (occurrence: SE)
  Receive Date: 20180911
  Receipt Date: 20180911
  Transmission Date: 20181010
  Serious: Yes (Hospitalization)
  Sender: FDA-Public Use
  Company Number: SE-ASTRAZENECA-2018SF11297

PATIENT
  Age: 55 Year
  Sex: Female

DRUGS (1)
  1. GIONA EASYHALER [Suspect]
     Active Substance: BUDESONIDE
     Indication: PRODUCT USED FOR UNKNOWN INDICATION
     Dosage: STRENGTH: 400 MCG/DOSE
     Route: 055

REACTIONS (3)
  - Hypersensitivity [Unknown]
  - Product quality issue [Unknown]
  - Dysphagia [Unknown]
